FAERS Safety Report 7714373-5 (Version None)
Quarter: 2011Q3

REPORT INFORMATION
  Report Type: 
  Country: None (occurrence: None)
  Receive Date: 20110829
  Receipt Date: 20110822
  Transmission Date: 20111222
  Serious: Yes (Hospitalization, Other)
  Sender: FDA-Public Use
  Company Number: US-ELI_LILLY_AND_COMPANY-US201107002490

PATIENT
  Sex: Male
  Weight: 88.889 kg

DRUGS (9)
  1. SULFAMETHIZOLE TAB [Concomitant]
     Dosage: 1 DF, EACH MORNING
  2. XALATAN [Concomitant]
     Dosage: 1 DF, EACH EVENING
  3. BYETTA [Suspect]
     Indication: DIABETES MELLITUS
     Dosage: 5 UG, BID
     Route: 058
     Dates: start: 20080509, end: 20080621
  4. ATENOLOL [Concomitant]
     Dosage: 100 MG, EACH MORNING
  5. METFORMIN HCL [Concomitant]
     Dosage: 1000 MG, BID
     Route: 048
  6. GABAPENTIN [Concomitant]
     Dosage: 300 MG, EACH EVENING
     Route: 048
  7. COMBIVENT [Concomitant]
  8. ALLEGRA D 24 HOUR [Concomitant]
     Dosage: 1 DF, BID
     Route: 048
  9. SOMA [Concomitant]
     Dosage: 250 MG, EACH MORNING
     Route: 048

REACTIONS (1)
  - PANCREATITIS ACUTE [None]
